FAERS Safety Report 19311069 (Version 1)
Quarter: 2021Q2

REPORT INFORMATION
  Report Type: Spontaneous
  Country: US (occurrence: US)
  Receive Date: 20210526
  Receipt Date: 20210526
  Transmission Date: 20210717
  Serious: Yes (Other)
  Sender: FDA-Public Use
  Company Number: US-MALLINCKRODT PHARMACEUTICALS-T202100827

PATIENT
  Age: 69 Year
  Sex: Female

DRUGS (2)
  1. H.P. ACTHAR [Suspect]
     Active Substance: CORTICOTROPIN
     Indication: CHORIORETINAL DISORDER
     Dosage: 1 MILLILITER (80 UNITS), EVERY THREE DAYS AS DIRECTED
     Route: 058
     Dates: start: 202102
  2. H.P. ACTHAR [Suspect]
     Active Substance: CORTICOTROPIN
     Indication: UVEITIS

REACTIONS (3)
  - Eye disorder [Unknown]
  - Blood pressure increased [Not Recovered/Not Resolved]
  - Injection site bruising [Unknown]

NARRATIVE: CASE EVENT DATE: 2021
